FAERS Safety Report 12327848 (Version 1)
Quarter: 2016Q2

REPORT INFORMATION
  Report Type: Spontaneous
  Country: US (occurrence: US)
  Receive Date: 20160503
  Receipt Date: 20160503
  Transmission Date: 20160815
  Serious: Yes (Other)
  Sender: FDA-Public Use
  Company Number: US-GLAXOSMITHKLINE-US2016061348

PATIENT
  Age: 79 Year
  Sex: Male

DRUGS (1)
  1. KERI ORIGINAL [Suspect]
     Active Substance: LANOLIN\MINERAL OIL
     Indication: DRY SKIN
     Dosage: UNK
     Route: 061

REACTIONS (5)
  - Pruritus [Recovered/Resolved]
  - Rash macular [Not Recovered/Not Resolved]
  - Rash generalised [Not Recovered/Not Resolved]
  - Myocardial infarction [Unknown]
  - Skin irritation [Unknown]
